FAERS Safety Report 25956936 (Version 1)
Quarter: 2025Q4

REPORT INFORMATION
  Report Type: Spontaneous
  Country: US (occurrence: None)
  Receive Date: 20251023
  Receipt Date: 20251023
  Transmission Date: 20260118
  Serious: Yes (Life-Threatening, Hospitalization)
  Sender: FDA-CTU
  Company Number: None

PATIENT
  Age: 55 Year
  Sex: Female
  Weight: 90 kg

DRUGS (14)
  1. OMNISCAN [Suspect]
     Active Substance: GADODIAMIDE
     Indication: Arthritis
  2. LISINOPRIL [Concomitant]
     Active Substance: LISINOPRIL
  3. CYMBALTA [Concomitant]
     Active Substance: DULOXETINE HYDROCHLORIDE
  4. Atorvastatine, [Concomitant]
  5. Gabapentine, [Concomitant]
  6. Pantoprazole, [Concomitant]
  7. Lacosimide, [Concomitant]
  8. HYDROXYZINE PAMOATE [Suspect]
     Active Substance: HYDROXYZINE PAMOATE
  9. Tylenol, [Concomitant]
  10. Aspirin, [Concomitant]
  11. Lactose, [Concomitant]
  12. Charco Caps, [Concomitant]
  13. Garlic, [Concomitant]
  14. VITAMINS [Concomitant]
     Active Substance: VITAMINS

REACTIONS (9)
  - Wrong technique in product usage process [None]
  - Hippocampal sclerosis [None]
  - Epilepsy [None]
  - Confusional state [None]
  - Insomnia [None]
  - Dizziness [None]
  - Dysgeusia [None]
  - Anxiety [None]
  - Depression [None]

NARRATIVE: CASE EVENT DATE: 20240211
